FAERS Safety Report 6704584-X (Version None)
Quarter: 2010Q2

REPORT INFORMATION
  Report Type: 
  Country: None (occurrence: None)
  Receive Date: 20100430
  Receipt Date: 20100408
  Transmission Date: 20101027
  Serious: Yes (Hospitalization, Other)
  Sender: FDA-Public Use
  Company Number: US-BAYER-201023427GPV

PATIENT
  Age: 62 Year
  Sex: Male

DRUGS (1)
  1. REFLUDAN [Suspect]
     Indication: ANTICOAGULANT THERAPY

REACTIONS (1)
  - PERIPHERAL ISCHAEMIA [None]
